FAERS Safety Report 9763365 (Version 1)
Quarter: 2013Q4

REPORT INFORMATION
  Report Type: Spontaneous
  Country: US (occurrence: US)
  Receive Date: 20131216
  Receipt Date: 20131216
  Transmission Date: 20140711
  Serious: No
  Sender: FDA-Public Use
  Company Number: US-BIOGENIDEC-2013BI106636

PATIENT
  Sex: Female

DRUGS (5)
  1. TECFIDERA [Suspect]
     Indication: PRODUCT USED FOR UNKNOWN INDICATION
     Route: 048
     Dates: end: 20131026
  2. DILANTIN [Concomitant]
  3. TOPAMAX [Concomitant]
  4. VITAMIN D [Concomitant]
  5. VITAMIN B [Concomitant]

REACTIONS (3)
  - Urinary retention [Not Recovered/Not Resolved]
  - Insomnia [Recovered/Resolved]
  - Alopecia [Not Recovered/Not Resolved]
